FAERS Safety Report 7709091-3 (Version None)
Quarter: 2011Q3

REPORT INFORMATION
  Report Type: 
  Country: None (occurrence: None)
  Receive Date: 20110825
  Receipt Date: 20110822
  Transmission Date: 20111222
  Serious: Yes (Life-Threatening, Hospitalization, Other)
  Sender: FDA-Public Use
  Company Number: IT-MPIJNJ-2011-01029

PATIENT

DRUGS (3)
  1. CYCLOPHOSPHAMIDE [Suspect]
     Indication: MULTIPLE MYELOMA
     Dosage: 895 MG, UNK
     Route: 042
     Dates: start: 20110226, end: 20110305
  2. DEXAMETHASONE [Suspect]
     Indication: MULTIPLE MYELOMA
     Dosage: 40 MG, UNK
     Route: 048
     Dates: start: 20110226, end: 20110307
  3. VELCADE [Suspect]
     Indication: MULTIPLE MYELOMA
     Dosage: 2.3 MG, UNK
     Route: 042
     Dates: start: 20110226, end: 20110306

REACTIONS (2)
  - PYREXIA [None]
  - PROTEIN-LOSING GASTROENTEROPATHY [None]
